FAERS Safety Report 7830345-4 (Version None)
Quarter: 2011Q4

REPORT INFORMATION
  Report Type: 
  Country: None (occurrence: None)
  Receive Date: 20111021
  Receipt Date: 20111013
  Transmission Date: 20120403
  Serious: Yes (Hospitalization, Other)
  Sender: FDA-Public Use
  Company Number: DE-BRISTOL-MYERS SQUIBB COMPANY-16168320

PATIENT
  Sex: Female
  Weight: 3 kg

DRUGS (4)
  1. REYATAZ [Suspect]
     Route: 064
     Dates: start: 20110618
  2. COMBIVIR [Suspect]
     Dosage: LAST ADMIN: 01JUL11 INTERRUPTED ON 01JUL11
     Route: 064
     Dates: start: 20110412
  3. KALETRA [Suspect]
     Dosage: LAST ADMIN: 18JUN11.
     Route: 064
     Dates: start: 20110412
  4. NORVIR [Suspect]
     Route: 064
     Dates: start: 20110618

REACTIONS (2)
  - CYTOMEGALOVIRUS INFECTION [None]
  - BLOOD BILIRUBIN INCREASED [None]
